FAERS Safety Report 15393832 (Version 2)
Quarter: 2018Q4

REPORT INFORMATION
  Report Type: Spontaneous
  Country: US (occurrence: US)
  Receive Date: 20180917
  Receipt Date: 20181006
  Transmission Date: 20190204
  Serious: Yes (Other)
  Sender: FDA-Public Use
  Company Number: US-ROCHE-2185235

PATIENT
  Age: 70 Year
  Sex: Male
  Weight: 170 kg

DRUGS (2)
  1. ACTEMRA [Suspect]
     Active Substance: TOCILIZUMAB
     Indication: RHEUMATOID ARTHRITIS
     Dosage: ONGOING:UNKNOWN
     Route: 058
     Dates: start: 201808
  2. ACTEMRA [Suspect]
     Active Substance: TOCILIZUMAB
     Indication: RHEUMATOID ARTHRITIS
     Dosage: ONGOING:UNKNOWN
     Route: 042

REACTIONS (4)
  - Ill-defined disorder [Unknown]
  - Chest pain [Unknown]
  - Hypertensive crisis [Not Recovered/Not Resolved]
  - Headache [Unknown]

NARRATIVE: CASE EVENT DATE: 20180911
